FAERS Safety Report 10612273 (Version 3)
Quarter: 2015Q1

REPORT INFORMATION
  Report Type: Report from Study
  Country: FR (occurrence: FR)
  Receive Date: 20141127
  Receipt Date: 20150213
  Transmission Date: 20150720
  Serious: Yes (Hospitalization)
  Sender: FDA-Public Use
  Company Number: FR-ROCHE-1485996

PATIENT
  Age: 44 Year
  Sex: Female
  Weight: 52 kg

DRUGS (7)
  1. VINDESINE [Suspect]
     Active Substance: VINDESINE
     Indication: DIFFUSE LARGE B-CELL LYMPHOMA
     Dosage: FREQUENCY AND DOSE AS PER PROTOCOL
     Route: 065
     Dates: start: 20141022
  2. CYCLOPHOSPHAMIDE. [Suspect]
     Active Substance: CYCLOPHOSPHAMIDE
     Indication: DIFFUSE LARGE B-CELL LYMPHOMA
     Dosage: FREQUENCY AND DOSE AS PER PROTOCOL
     Route: 065
     Dates: start: 20141022
  3. DOXORUBICIN [Suspect]
     Active Substance: DOXORUBICIN
     Indication: DIFFUSE LARGE B-CELL LYMPHOMA
     Dosage: FREQUENCY AND DOSE AS PER PROTOCOL.
     Route: 065
     Dates: start: 20141022
  4. BLEOMYCIN [Suspect]
     Active Substance: BLEOMYCIN SULFATE
     Indication: DIFFUSE LARGE B-CELL LYMPHOMA
     Dosage: 10MG TOTAL (ON D1/D5). ?FREQUENCY AND DOSE AS PER PROTOCOL
     Route: 065
     Dates: start: 20141022
  5. OBINUTUZUMAB [Suspect]
     Active Substance: OBINUTUZUMAB
     Indication: DIFFUSE LARGE B-CELL LYMPHOMA
     Dosage: LAST DOSE PRIOR TO SAE: 29/OCT/2014.?TEMPORARILY STOPPED ON 05/NOV/2014 IN RESPONSE TO SAE AND RESTA
     Route: 042
     Dates: start: 20141022
  6. METHOTREXATE [Suspect]
     Active Substance: METHOTREXATE
     Indication: DIFFUSE LARGE B-CELL LYMPHOMA
     Dosage: TOTAL DOSE 15MG (IT). FREQUENCY AND DOSE AS PER PROTOCOL.
     Route: 037
     Dates: start: 20141022
  7. PREDNISONE. [Suspect]
     Active Substance: PREDNISONE
     Indication: DIFFUSE LARGE B-CELL LYMPHOMA
     Dosage: FREQUENCY AND DOSE AS PER PROTOCOL
     Route: 065
     Dates: start: 20141022

REACTIONS (1)
  - Localised infection [Recovered/Resolved]

NARRATIVE: CASE EVENT DATE: 20141103
